FAERS Safety Report 18818209 (Version 7)
Quarter: 2021Q4

REPORT INFORMATION
  Report Type: Report from Study
  Country: US (occurrence: US)
  Receive Date: 20210201
  Receipt Date: 20211110
  Transmission Date: 20220303
  Serious: Yes (Hospitalization, Disabling)
  Sender: FDA-Public Use
  Company Number: NVSC2021US018866

PATIENT
  Sex: Female

DRUGS (2)
  1. ENTRESTO [Suspect]
     Active Substance: SACUBITRIL\VALSARTAN
     Indication: Product used for unknown indication
     Dosage: 1 DF (24/26 MG), BID
     Route: 048
     Dates: start: 2020
  2. CARVEDILOL [Suspect]
     Active Substance: CARVEDILOL
     Indication: Product used for unknown indication
     Route: 065

REACTIONS (14)
  - Cardiac failure [Unknown]
  - Illness [Unknown]
  - Hypervolaemia [Recovering/Resolving]
  - Blood glucose abnormal [Unknown]
  - Malnutrition [Unknown]
  - Alopecia [Unknown]
  - Back injury [Recovering/Resolving]
  - Fall [Unknown]
  - Dyspnoea [Unknown]
  - Weight abnormal [Unknown]
  - Fatigue [Unknown]
  - Asthenia [Recovering/Resolving]
  - Hypotension [Recovering/Resolving]
  - Product dose omission issue [Unknown]

NARRATIVE: CASE EVENT DATE: 20200101
